FAERS Safety Report 20506674 (Version 1)
Quarter: 2022Q1

REPORT INFORMATION
  Report Type: Spontaneous
  Country: US (occurrence: None)
  Receive Date: 20220222
  Receipt Date: 20220222
  Transmission Date: 20220423
  Serious: No
  Sender: FDA-Public Use
  Company Number: None

PATIENT
  Sex: Male

DRUGS (2)
  1. DICYCLOMINE [Suspect]
     Active Substance: DICYCLOMINE HYDROCHLORIDE
     Dosage: FREQUENCY : AS NEEDED;?
     Route: 048
  2. AMBIEN [Suspect]
     Active Substance: ZOLPIDEM TARTRATE

REACTIONS (7)
  - Dizziness [None]
  - Asthenia [None]
  - Insomnia [None]
  - Drug ineffective [None]
  - Hallucination, visual [None]
  - Poor quality sleep [None]
  - Somnolence [None]

NARRATIVE: CASE EVENT DATE: 20220201
